FAERS Safety Report 4698304-0 (Version None)
Quarter: 2005Q2

REPORT INFORMATION
  Report Type: 
  Country: None (occurrence: None)
  Receive Date: 20050623
  Receipt Date: 20050118
  Transmission Date: 20051028
  Serious: Yes (Hospitalization)
  Sender: FDA-Public Use
  Company Number: US-ROCHE-392818

PATIENT
  Age: 3 Year
  Sex: Female
  Weight: 21.1 kg

DRUGS (20)
  1. DACLIZUMAB [Suspect]
     Route: 042
     Dates: start: 20050106, end: 20050203
  2. MYCOPHENOLATE MOFETIL [Suspect]
     Route: 065
  3. MYCOPHENOLATE MOFETIL [Suspect]
     Route: 065
  4. PROGRAF [Suspect]
     Route: 048
  5. PROGRAF [Suspect]
     Route: 048
  6. PROGRAF [Suspect]
     Route: 048
  7. MANNITOL [Concomitant]
  8. DOPAMINE HCL [Concomitant]
  9. MORPHINE [Concomitant]
  10. GANCICLOVIR [Concomitant]
  11. SEPTRA [Concomitant]
  12. PREVACID [Concomitant]
  13. VERSED [Concomitant]
  14. FENTANYL [Concomitant]
  15. IMODIUM [Concomitant]
  16. VALCYTE [Concomitant]
  17. LASIX [Concomitant]
     Route: 042
     Dates: end: 20050114
  18. BACTRIM [Concomitant]
  19. POLY-VI-SOL [Concomitant]
  20. KEFLEX [Concomitant]

REACTIONS (9)
  - ATHEROSCLEROSIS [None]
  - BLOOD CREATININE INCREASED [None]
  - COMPLICATIONS OF TRANSPLANTED KIDNEY [None]
  - FLUID OVERLOAD [None]
  - OLIGURIA [None]
  - RENAL CYST [None]
  - TENDERNESS [None]
  - UPPER RESPIRATORY TRACT INFECTION [None]
  - VIRAL UPPER RESPIRATORY TRACT INFECTION [None]
